FAERS Safety Report 13448102 (Version 1)
Quarter: 2017Q2

REPORT INFORMATION
  Report Type: Spontaneous
  Country: FR (occurrence: FR)
  Receive Date: 20170417
  Receipt Date: 20170417
  Transmission Date: 20170830
  Serious: Yes (Other)
  Sender: FDA-Public Use
  Company Number: FR-009507513-1704FRA003895

PATIENT
  Age: 51 Year
  Sex: Female

DRUGS (4)
  1. IOPAMIRON [Suspect]
     Active Substance: IOPAMIDOL
     Indication: JOINT INJECTION
     Dosage: UNK
     Route: 014
     Dates: start: 20170313
  2. DIPROSTENE [Suspect]
     Active Substance: BETAMETHASONE DIPROPIONATE\BETAMETHASONE SODIUM PHOSPHATE
     Indication: JOINT INJECTION
     Dosage: UNK
     Route: 014
     Dates: start: 20170313
  3. BETADINE [Suspect]
     Active Substance: POVIDONE-IODINE
     Indication: JOINT INJECTION
     Dosage: UNK
     Route: 014
     Dates: start: 20170313
  4. XYLOCAINE [Suspect]
     Active Substance: LIDOCAINE HYDROCHLORIDE
     Indication: JOINT INJECTION
     Dosage: UNK
     Route: 014
     Dates: start: 20170313

REACTIONS (1)
  - Pancreatitis acute [Unknown]

NARRATIVE: CASE EVENT DATE: 20170314
